FAERS Safety Report 9466291 (Version 2)
Quarter: 2013Q3

REPORT INFORMATION
  Report Type: Spontaneous
  Country: US (occurrence: US)
  Receive Date: 20130820
  Receipt Date: 20130828
  Transmission Date: 20140515
  Serious: Yes (Hospitalization)
  Sender: FDA-Public Use
  Company Number: US-GILEAD-2013-0081676

PATIENT
  Sex: Female

DRUGS (4)
  1. LETAIRIS [Suspect]
     Indication: PULMONARY HYPERTENSION
     Dosage: 5 MG, QD
     Dates: start: 20130320
  2. LETAIRIS [Suspect]
     Indication: UNEVALUABLE EVENT
  3. PRILOSEC                           /00661201/ [Concomitant]
  4. NEXIUM                             /01479302/ [Concomitant]

REACTIONS (2)
  - Sickle cell anaemia [Unknown]
  - Gastric disorder [Unknown]
